FAERS Safety Report 5064510-9 (Version None)
Quarter: 2006Q3

REPORT INFORMATION
  Report Type: 
  Country: None (occurrence: None)
  Receive Date: 20060728
  Receipt Date: 20060717
  Transmission Date: 20061208
  Serious: Yes (Hospitalization)
  Sender: FDA-Public Use
  Company Number: US-AMGEN-US186707

PATIENT
  Sex: Female

DRUGS (1)
  1. KINERET [Suspect]
     Indication: RHEUMATOID ARTHRITIS
     Route: 058
     Dates: start: 20040101

REACTIONS (4)
  - DRUG INEFFECTIVE [None]
  - RESPIRATORY TRACT INFECTION [None]
  - THYROIDECTOMY [None]
  - UPPER RESPIRATORY TRACT INFECTION [None]
